FAERS Safety Report 17889981 (Version 1)
Quarter: 2020Q2

REPORT INFORMATION
  Report Type: Spontaneous
  Country: FR (occurrence: FR)
  Receive Date: 20200612
  Receipt Date: 20200612
  Transmission Date: 20200714
  Serious: Yes (Hospitalization)
  Sender: FDA-Public Use
  Company Number: FR-ROCHE-2618121

PATIENT
  Age: 56 Year
  Sex: Male
  Weight: 78 kg

DRUGS (4)
  1. PRIMPERAN [Concomitant]
     Active Substance: METOCLOPRAMIDE HYDROCHLORIDE
  2. XELODA [Suspect]
     Active Substance: CAPECITABINE
     Indication: CHOLANGIOCARCINOMA
     Dosage: LAST DOSE RECEIVED ON 14/APR/2020.
     Route: 048
     Dates: start: 20200408
  3. LYRICA [Concomitant]
     Active Substance: PREGABALIN
  4. GEMCITABINE. [Suspect]
     Active Substance: GEMCITABINE
     Indication: CHOLANGIOCARCINOMA
     Route: 040
     Dates: start: 20200408

REACTIONS (3)
  - Neutropenia [Recovered/Resolved]
  - Thrombocytopenia [Recovered/Resolved]
  - Gastrointestinal toxicity [Recovering/Resolving]

NARRATIVE: CASE EVENT DATE: 20200414
